FAERS Safety Report 4708904-7 (Version None)
Quarter: 2005Q3

REPORT INFORMATION
  Report Type: 
  Country: None (occurrence: None)
  Receive Date: 20050705
  Receipt Date: 20050624
  Transmission Date: 20060218
  Serious: Yes (Hospitalization)
  Sender: FDA-Public Use
  Company Number: 200510447BFR

PATIENT
  Age: 58 Year
  Sex: Female

DRUGS (1)
  1. MOXIFLOXACIN HYDROCHLORIDE [Suspect]
     Indication: EAR PAIN
     Dosage: NI, QD; ORAL
     Route: 048
     Dates: start: 20050211, end: 20050214

REACTIONS (6)
  - CONJUNCTIVITIS [None]
  - MUCOSAL EROSION [None]
  - PYREXIA [None]
  - RASH [None]
  - SKIN EXFOLIATION [None]
  - TOXIC EPIDERMAL NECROLYSIS [None]
